FAERS Safety Report 5470614-9 (Version None)
Quarter: 2007Q3

REPORT INFORMATION
  Report Type: 
  Country: None (occurrence: None)
  Receive Date: 20070820
  Receipt Date: 20070501
  Transmission Date: 20080115
  Serious: No
  Sender: FDA-Public Use
  Company Number: WAES 0705USA00447

PATIENT
  Age: 58 Year
  Sex: Male

DRUGS (4)
  1. JANUVIA [Suspect]
     Indication: TYPE 2 DIABETES MELLITUS
     Dosage: 100 MG/DAILY/PO
     Route: 048
     Dates: start: 20070417, end: 20070428
  2. LIPITOR [Concomitant]
  3. SINGULAIR [Concomitant]
  4. ZETIA [Concomitant]

REACTIONS (1)
  - HEADACHE [None]
